FAERS Safety Report 5192667-8 (Version None)
Quarter: 2006Q4

REPORT INFORMATION
  Report Type: 
  Country: None (occurrence: None)
  Receive Date: 20061220
  Receipt Date: 20061215
  Transmission Date: 20070319
  Serious: No
  Sender: FDA-Public Use
  Company Number: 233660

PATIENT
  Age: 51 Year
  Sex: Female
  Weight: 121.5 kg

DRUGS (3)
  1. AVASTIN [Suspect]
     Indication: BREAST CANCER METASTATIC
     Dosage: 1800 MG, Q3W, INTRAVENOUS
     Route: 042
     Dates: start: 20061127
  2. TAXOL [Concomitant]
  3. AREDIA [Concomitant]

REACTIONS (3)
  - PRODUCTIVE COUGH [None]
  - RASH VESICULAR [None]
  - SKIN DISCOLOURATION [None]
